FAERS Safety Report 7939586-9 (Version None)
Quarter: 2011Q4

REPORT INFORMATION
  Report Type: 
  Country: None (occurrence: None)
  Receive Date: 20111125
  Receipt Date: 20110907
  Transmission Date: 20120403
  Serious: No
  Sender: FDA-Public Use
  Company Number: US-BAYER-2011-088971

PATIENT
  Age: 82 Year
  Sex: Female
  Weight: 75 kg

DRUGS (6)
  1. OMEPRAZOLE [Concomitant]
  2. ASTHMA INHALER [Concomitant]
  3. NORVASC [Concomitant]
  4. LEVOTHYROXINE SODIUM [Concomitant]
  5. ALLERGY INHALER [Concomitant]
  6. ALEVE (CAPLET) [Suspect]
     Dosage: 2 DF, BID
     Route: 048
     Dates: start: 20110818

REACTIONS (1)
  - NO ADVERSE EVENT [None]
